FAERS Safety Report 9212944 (Version 1)
Quarter: 2013Q2

REPORT INFORMATION
  Report Type: Spontaneous
  Country: US (occurrence: None)
  Receive Date: 20130403
  Receipt Date: 20130403
  Transmission Date: 20140414
  Serious: Yes (Life-Threatening)
  Sender: FDA-Public Use
  Company Number: None

PATIENT
  Age: 61 Year
  Sex: Male
  Weight: 83.46 kg

DRUGS (1)
  1. METFORMIN [Suspect]
     Indication: TYPE 2 DIABETES MELLITUS
     Route: 048
     Dates: start: 20130107, end: 20130330

REACTIONS (6)
  - Drug ineffective [None]
  - Product quality issue [None]
  - Product odour abnormal [None]
  - Product substitution issue [None]
  - Drug effect increased [None]
  - Blood glucose decreased [None]
